FAERS Safety Report 20406935 (Version 6)
Quarter: 2022Q2

REPORT INFORMATION
  Report Type: Spontaneous
  Country: US (occurrence: US)
  Receive Date: 20220131
  Receipt Date: 20220614
  Transmission Date: 20220720
  Serious: Yes (Hospitalization)
  Sender: FDA-Public Use
  Company Number: US-GLAXOSMITHKLINE-US2022015259

PATIENT

DRUGS (3)
  1. ZEJULA [Suspect]
     Active Substance: NIRAPARIB
     Indication: Ovarian cancer
     Dosage: 300 MG, QD
     Route: 048
     Dates: start: 20220112
  2. ZEJULA [Suspect]
     Active Substance: NIRAPARIB
     Dosage: 300 MG, QD
     Route: 048
  3. ZEJULA [Suspect]
     Active Substance: NIRAPARIB
     Dosage: 300 MG, QD
     Route: 048
     Dates: end: 20220517

REACTIONS (11)
  - Hernia [Unknown]
  - Nausea [Not Recovered/Not Resolved]
  - Cough [Unknown]
  - Headache [Not Recovered/Not Resolved]
  - COVID-19 [Unknown]
  - Fatigue [Not Recovered/Not Resolved]
  - Flatulence [Unknown]
  - Frequent bowel movements [Unknown]
  - Abdominal pain upper [Unknown]
  - Constipation [Unknown]
  - Intentional dose omission [Unknown]

NARRATIVE: CASE EVENT DATE: 20220101
